FAERS Safety Report 6500209-7 (Version None)
Quarter: 2009Q4

REPORT INFORMATION
  Report Type: 
  Country: None (occurrence: None)
  Receive Date: 20091216
  Receipt Date: 20091208
  Transmission Date: 20100525
  Serious: Yes (Hospitalization)
  Sender: FDA-Public Use
  Company Number: BE-ABBOTT-09P-013-0599120-00

PATIENT
  Sex: Male

DRUGS (1)
  1. HUMIRA [Suspect]
     Indication: ANKYLOSING SPONDYLITIS
     Dates: start: 20090210

REACTIONS (4)
  - CROHN'S DISEASE [None]
  - RASH [None]
  - SMALL INTESTINAL OBSTRUCTION [None]
  - WEIGHT INCREASED [None]
